FAERS Safety Report 6496346-6 (Version None)
Quarter: 2009Q4

REPORT INFORMATION
  Report Type: 
  Country: None (occurrence: None)
  Receive Date: 20091209
  Receipt Date: 20091126
  Transmission Date: 20100525
  Serious: Yes (Other)
  Sender: FDA-Public Use
  Company Number: 1000009763

PATIENT
  Age: 58 Year
  Sex: Female
  Weight: 64 kg

DRUGS (4)
  1. CITALOPRAM HYDROBROMIDE [Suspect]
     Indication: DEPRESSION
     Dosage: 20 MG (20 MG,1 IN 1 D),ORAL
     Route: 048
     Dates: start: 20090826, end: 20091021
  2. LEXOMIL [Concomitant]
  3. ZOLPIDEM [Concomitant]
  4. PROPOFAN [Concomitant]

REACTIONS (2)
  - MUSCLE CONTRACTURE [None]
  - RESTLESS LEGS SYNDROME [None]
